FAERS Safety Report 4356506-7 (Version None)
Quarter: 2004Q2

REPORT INFORMATION
  Report Type: 
  Country: None (occurrence: None)
  Receive Date: 20040507
  Receipt Date: 20040429
  Transmission Date: 20050107
  Serious: Yes (Life-Threatening, Other)
  Sender: FDA-Public Use
  Company Number: HQWYE651229APR04

PATIENT
  Age: 48 Year
  Sex: Female

DRUGS (3)
  1. TRANGOREX (AMIODARONE, INJECTION) [Suspect]
     Indication: ATRIAL FLUTTER
     Dosage: 30 UG IN 1/2 HOUR
     Dates: start: 20040418, end: 20040418
  2. ADENOSINE [Concomitant]
  3. DIGOXIN [Concomitant]

REACTIONS (7)
  - ABDOMINAL PAIN UPPER [None]
  - BLOOD GLUCOSE INCREASED [None]
  - HYPOTENSION [None]
  - LYMPHOCYTE PERCENTAGE DECREASED [None]
  - NEUTROPHIL PERCENTAGE INCREASED [None]
  - RED BLOOD CELL COUNT DECREASED [None]
  - WHITE BLOOD CELL COUNT INCREASED [None]
